FAERS Safety Report 19503236 (Version 2)
Quarter: 2022Q2

REPORT INFORMATION
  Report Type: Spontaneous
  Country: US (occurrence: None)
  Receive Date: 20210707
  Receipt Date: 20220621
  Transmission Date: 20220721
  Serious: No
  Sender: FDA-Public Use
  Company Number: US-ROCHE-2624269

PATIENT
  Sex: Male
  Weight: 59 kg

DRUGS (11)
  1. CELLCEPT [Suspect]
     Active Substance: MYCOPHENOLATE MOFETIL
     Indication: Product used for unknown indication
     Route: 048
  2. PROGRAF [Suspect]
     Active Substance: TACROLIMUS
     Indication: Liver transplant
     Route: 048
  3. INSULIN NOS [Concomitant]
     Active Substance: INSULIN NOS
  4. NORVASC [Concomitant]
     Active Substance: AMLODIPINE BESYLATE
  5. ASPIRIN [Concomitant]
     Active Substance: ASPIRIN
  6. LEVEMIR [Concomitant]
     Active Substance: INSULIN DETEMIR
  7. INSULIN LISPRO [Concomitant]
     Active Substance: INSULIN LISPRO
  8. PRILOSEC [Concomitant]
     Active Substance: OMEPRAZOLE MAGNESIUM
  9. SIMVASTATIN [Concomitant]
     Active Substance: SIMVASTATIN
  10. LORATADINE [Concomitant]
     Active Substance: LORATADINE
  11. PROMETHAZINE [Concomitant]
     Active Substance: PROMETHAZINE HYDROCHLORIDE

REACTIONS (4)
  - Mental disorder [Recovering/Resolving]
  - Tremor [Not Recovered/Not Resolved]
  - Expired product administered [Unknown]
  - Inability to afford medication [Unknown]
